FAERS Safety Report 21595435 (Version 1)
Quarter: 2022Q4

REPORT INFORMATION
  Report Type: Report from Study
  Country: US (occurrence: US)
  Receive Date: 20221115
  Receipt Date: 20221115
  Transmission Date: 20230112
  Serious: Yes (Hospitalization, Other)
  Sender: FDA-Public Use
  Company Number: US-TAKEDA-2016BLT006957

PATIENT
  Sex: Female

DRUGS (1)
  1. HUMAN IMMUNOGLOBULIN G [Suspect]
     Active Substance: HUMAN IMMUNOGLOBULIN G
     Indication: Hypogammaglobulinaemia
     Dosage: 60 G, EVERY 2 WK
     Route: 042

REACTIONS (5)
  - Cardiac failure congestive [Unknown]
  - Hypervolaemia [Unknown]
  - Vertigo [Unknown]
  - Nausea [Unknown]
  - Dyspnoea [Unknown]
